FAERS Safety Report 4325443-6 (Version None)
Quarter: 2004Q1

REPORT INFORMATION
  Report Type: 
  Country: None (occurrence: None)
  Receive Date: 20040324
  Receipt Date: 20040312
  Transmission Date: 20041129
  Serious: Yes (Hospitalization)
  Sender: FDA-Public Use
  Company Number: STA-AE-04-MTX-103

PATIENT
  Age: 66 Year
  Sex: Female

DRUGS (16)
  1. METHOTREXATE [Suspect]
     Indication: RHEUMATOID ARTHRITIS
     Dosage: 15 MG 1X PER 1 WK, ORAL
     Route: 048
     Dates: start: 19950101
  2. HUMIRA [Suspect]
     Dosage: 40 MG 1X PR 2 WK, SC
     Route: 058
     Dates: start: 20030630
  3. PREDNISONE [Suspect]
     Dosage: 4 MG 1X PER 1 DAY, ORAL
     Route: 048
     Dates: start: 19950101
  4. CELEBREX [Concomitant]
  5. AVALIDE [Concomitant]
  6. SYNTHROID [Concomitant]
  7. NEURONTIN [Concomitant]
  8. K-DUR 10 [Concomitant]
  9. NORVASC [Concomitant]
  10. LEXAPRO [Concomitant]
  11. WELLBUTRIN [Concomitant]
  12. AMITRIPTYLINE HCL [Concomitant]
  13. URISED [Concomitant]
  14. FOSAMAX [Concomitant]
  15. FOLIC ACID [Concomitant]
  16. LORTAB [Concomitant]

REACTIONS (2)
  - ARTHROPOD BITE [None]
  - CELLULITIS STAPHYLOCOCCAL [None]
